FAERS Safety Report 9119479 (Version 1)
Quarter: 2013Q1

REPORT INFORMATION
  Report Type: Spontaneous
  Country: US (occurrence: None)
  Receive Date: 20130221
  Receipt Date: 20130221
  Transmission Date: 20140127
  Serious: No
  Sender: FDA-Public Use
  Company Number: None

PATIENT
  Sex: Female

DRUGS (2)
  1. NORVASC (AMLODIPINE BESILATE) [Suspect]
     Dosage: NORVASC AMLODIPINE 2.5 TABLET 2.5 MG
  2. TRAZADONE [Suspect]
     Dosage: TRAZODONE HCL TABLET 50 MG

REACTIONS (2)
  - Medication error [None]
  - Intercepted drug dispensing error [None]
